FAERS Safety Report 14190703 (Version 1)
Quarter: 2017Q4

REPORT INFORMATION
  Report Type: Spontaneous
  Country: US (occurrence: US)
  Receive Date: 20171114
  Receipt Date: 20171114
  Transmission Date: 20180321
  Serious: Yes (Other)
  Sender: FDA-Public Use
  Company Number: None

PATIENT
  Age: 68 Year
  Sex: Female
  Weight: 170 kg

DRUGS (5)
  1. NIPHEDAPINE [Concomitant]
  2. LISINOPRIL. [Concomitant]
     Active Substance: LISINOPRIL
  3. IBUPROPHEN [Concomitant]
     Active Substance: IBUPROFEN
  4. TENSION HEADACHE RELIEF [Suspect]
     Active Substance: ACETAMINOPHEN\CAFFEINE
     Indication: TENSION HEADACHE
     Dosage: QUANTITY:24 TABLET(S);?STRENGTH: ACETAMENOPHEN 500MG, CAFFEINE B65 MG MILLIGRAMS
     Route: 048
     Dates: start: 20171112, end: 20171112
  5. ATORVASTATIN [Concomitant]
     Active Substance: ATORVASTATIN

REACTIONS (3)
  - Rectal haemorrhage [None]
  - Abdominal pain upper [None]
  - Gastrointestinal injury [None]

NARRATIVE: CASE EVENT DATE: 20171113
